FAERS Safety Report 5786386-4 (Version None)
Quarter: 2008Q2

REPORT INFORMATION
  Report Type: 
  Country: None (occurrence: None)
  Receive Date: 20080624
  Receipt Date: 20080613
  Transmission Date: 20081010
  Serious: Yes (Life-Threatening, Hospitalization, Other)
  Sender: FDA-Public Use
  Company Number: US-ELI_LILLY_AND_COMPANY-US200806003334

PATIENT
  Age: 86 Year
  Sex: Male

DRUGS (4)
  1. HUMULIN N [Suspect]
     Dosage: 60 U, EACH MORNING
  2. HUMULIN N [Suspect]
     Dosage: 30 U, EACH EVENING
  3. HUMULIN R [Suspect]
  4. LANTUS [Concomitant]
     Dosage: UNK, EACH EVENING

REACTIONS (12)
  - APRAXIA [None]
  - BLOOD GLUCOSE DECREASED [None]
  - CEREBROVASCULAR ACCIDENT [None]
  - CONFUSIONAL STATE [None]
  - DISORIENTATION [None]
  - GAIT DISTURBANCE [None]
  - HYPOKINESIA [None]
  - INTERVERTEBRAL DISC DISORDER [None]
  - PANCREATIC CARCINOMA [None]
  - PANCREATIC DISORDER [None]
  - POSTOPERATIVE RESPIRATORY DISTRESS [None]
  - PYREXIA [None]
